FAERS Safety Report 23972250 (Version 1)
Quarter: 2024Q2

REPORT INFORMATION
  Report Type: Spontaneous
  Country: US (occurrence: US)
  Receive Date: 20240613
  Receipt Date: 20240613
  Transmission Date: 20240716
  Serious: No
  Sender: FDA-Public Use
  Company Number: US-PFIZER INC-202400191428

PATIENT
  Sex: Female

DRUGS (1)
  1. TOFACITINIB [Suspect]
     Active Substance: TOFACITINIB

REACTIONS (2)
  - Infection [Unknown]
  - Cough [Unknown]
